FAERS Safety Report 7099729-9 (Version None)
Quarter: 2010Q4

REPORT INFORMATION
  Report Type: 
  Country: None (occurrence: None)
  Receive Date: 20101112
  Receipt Date: 20101108
  Transmission Date: 20110411
  Serious: Yes (Hospitalization)
  Sender: FDA-Public Use
  Company Number: JP-SP-2010-06171

PATIENT
  Age: 57 Year
  Sex: Female

DRUGS (2)
  1. IMMUCYST [Suspect]
     Indication: BLADDER CANCER
     Route: 043
     Dates: start: 20100910, end: 20101015
  2. CIPROFLOXACIN [Concomitant]
     Dates: start: 20100910, end: 20101015

REACTIONS (4)
  - CONJUNCTIVITIS [None]
  - MALAISE [None]
  - OEDEMA [None]
  - PYREXIA [None]
